FAERS Safety Report 5413830-4 (Version None)
Quarter: 2007Q3

REPORT INFORMATION
  Report Type: 
  Country: None (occurrence: None)
  Receive Date: 20070814
  Receipt Date: 20061204
  Transmission Date: 20080115
  Serious: No
  Sender: FDA-Public Use
  Company Number: US-BRISTOL-MYERS SQUIBB COMPANY-13600119

PATIENT
  Age: 48 Year
  Sex: Male

DRUGS (11)
  1. REYATAZ [Suspect]
     Indication: HIV INFECTION
     Route: 048
  2. REYATAZ [Suspect]
     Indication: ACQUIRED IMMUNODEFICIENCY SYNDROME
     Route: 048
  3. DIDANOSINE [Suspect]
     Indication: HIV INFECTION
     Route: 048
  4. NORVIR [Suspect]
     Indication: HIV INFECTION
     Route: 048
  5. VIREAD [Suspect]
     Indication: HIV INFECTION
  6. CEREFOLIN [Concomitant]
     Dosage: DOSAGE FORM-TAB
     Route: 048
  7. BACTRIM DS [Concomitant]
     Dosage: DOSAGE FORM-CAPSULE
     Route: 048
  8. DIAZEPAM [Concomitant]
     Route: 048
  9. FLUCONAZOLE [Concomitant]
  10. MEPERIDINE HCL [Concomitant]
     Route: 048
  11. FENTANYL TRANSDERMAL SYSTEM [Concomitant]
     Dosage: DOSAGE FORM-PATCH

REACTIONS (2)
  - ACCIDENTAL OVERDOSE [None]
  - NO ADVERSE REACTION [None]
